FAERS Safety Report 6914044-9 (Version None)
Quarter: 2010Q3

REPORT INFORMATION
  Report Type: 
  Country: None (occurrence: None)
  Receive Date: 20100809
  Receipt Date: 20100728
  Transmission Date: 20110219
  Serious: Yes (Disabling, Other)
  Sender: FDA-Public Use
  Company Number: PHHY2010JP19901

PATIENT
  Sex: Female
  Weight: 62 kg

DRUGS (1)
  1. FEMARA [Suspect]
     Dosage: 2.5 MG DAILY
     Route: 048
     Dates: start: 20061013, end: 20091228

REACTIONS (6)
  - FOREIGN BODY SENSATION IN EYES [None]
  - RETINAL HAEMORRHAGE [None]
  - RETINAL VEIN OCCLUSION [None]
  - SURGERY [None]
  - VISION BLURRED [None]
  - VISUAL ACUITY REDUCED [None]
